FAERS Safety Report 9136701 (Version 1)
Quarter: 2013Q1

REPORT INFORMATION
  Report Type: Spontaneous
  Country: ES (occurrence: ES)
  Receive Date: 20130304
  Receipt Date: 20130304
  Transmission Date: 20140127
  Serious: Yes (Other)
  Sender: FDA-Public Use
  Company Number: ES-009507513-1303ESP000141

PATIENT
  Age: 79 None
  Sex: Male
  Weight: 64 kg

DRUGS (1)
  1. SINEMET-PLUS [Suspect]
     Indication: PARKINSON^S DISEASE
     Dosage: 12.5 MG, PRN
     Route: 048
     Dates: start: 20121120, end: 20130123

REACTIONS (1)
  - Hypotension [Recovering/Resolving]
